FAERS Safety Report 6060100-X (Version None)
Quarter: 2009Q1

REPORT INFORMATION
  Report Type: 
  Country: None (occurrence: None)
  Receive Date: 20090128
  Receipt Date: 20090116
  Transmission Date: 20090719
  Serious: Yes (Hospitalization)
  Sender: FDA-Public Use
  Company Number: TCI2009A00092

PATIENT
  Age: 70 Year
  Sex: Female

DRUGS (7)
  1. ACTOS [Suspect]
     Indication: DIABETES MELLITUS
     Dosage: 30 MG (30 MG,1 D) PER ORAL
     Route: 048
     Dates: end: 20081210
  2. MICARDIS [Concomitant]
  3. CARVEDILOL [Concomitant]
  4. KINEDAK (EPALRESTAT) [Concomitant]
  5. NATEGLINIDE [Concomitant]
  6. NICARDIPINE HYDROCHLORIDE [Concomitant]
  7. ALLOPURINOL [Concomitant]

REACTIONS (3)
  - CARDIAC FAILURE [None]
  - DYSPNOEA [None]
  - PERICARDIAL EFFUSION [None]
